FAERS Safety Report 8338909 (Version 2)
Quarter: 2013Q2

REPORT INFORMATION
  Report Type: Spontaneous
  Country: US (occurrence: None)
  Receive Date: 20111202
  Receipt Date: 20121203
  Transmission Date: 20140414
  Serious: Yes (Other)
  Sender: FDA-Public Use
  Company Number: 2011SP026442

PATIENT
  Age: 52 Year
  Sex: Female
  Weight: 79.4 kg

DRUGS (1)
  1. NUVARING [Suspect]
     Indication: CONTRACEPTION
     Dates: start: 200705

REACTIONS (20)
  - DEEP VEIN THROMBOSIS [None]
  - PULMONARY EMBOLISM [None]
  - Eye laser surgery [None]
  - Abdominal pain [None]
  - Thrombophlebitis [None]
  - Anaemia [None]
  - Angina pectoris [None]
  - Cellulitis [None]
  - Eye infection [None]
  - Bipolar disorder [None]
  - Gastric disorder [None]
  - Insomnia [None]
  - Major depression [None]
  - Anxiety [None]
  - Urinary tract infection [None]
  - Peripheral embolism [None]
  - Nausea [None]
  - Pain [None]
  - Metrorrhagia [None]
  - Off label use [None]
